FAERS Safety Report 8987459 (Version 1)
Quarter: 2012Q4

REPORT INFORMATION
  Report Type: 
  Country: US (occurrence: US)
  Receive Date: 20121227
  Receipt Date: 20121227
  Transmission Date: 20130627
  Serious: No
  Sender: FDA-Public Use
  Company Number: US-PFIZER INC-2012327238

PATIENT
  Age: 40 Year
  Sex: Female
  Weight: 61.2 kg

DRUGS (2)
  1. SUTENT [Suspect]
     Dosage: 37.5 mg, 1x/day,  (12.5mg X3 )
     Dates: start: 20121201
  2. SYNTHROID [Concomitant]
     Dosage: UNK

REACTIONS (3)
  - Blood pressure increased [Unknown]
  - Heart rate increased [Unknown]
  - Blood pressure abnormal [Unknown]
